FAERS Safety Report 11633328 (Version 2)
Quarter: 2015Q4

REPORT INFORMATION
  Report Type: Spontaneous
  Country: US (occurrence: None)
  Receive Date: 20151015
  Receipt Date: 20151118
  Transmission Date: 20160304
  Serious: No
  Sender: FDA-Public Use
  Company Number: ADR-2013-02281

PATIENT
  Age: 60 Year
  Sex: Male

DRUGS (2)
  1. BUPIVACAINE 7.5 MG/ML [Suspect]
     Active Substance: BUPIVACAINE
     Indication: SURGERY
     Dosage: 6.9214 MG/DAY
  2. BACLOFEN INTRATHECAL 100 MCG/ML [Suspect]
     Active Substance: BACLOFEN
     Indication: SURGERY
     Dosage: 92.29 MCG/DAY

REACTIONS (2)
  - Pain [None]
  - No therapeutic response [None]
